FAERS Safety Report 6111382-7 (Version None)
Quarter: 2009Q1

REPORT INFORMATION
  Report Type: 
  Country: None (occurrence: None)
  Receive Date: 20090311
  Receipt Date: 20090304
  Transmission Date: 20090719
  Serious: Yes (Hospitalization)
  Sender: FDA-Public Use
  Company Number: B0563136A

PATIENT
  Age: 52 Year
  Sex: Male

DRUGS (3)
  1. COMBIVIR [Suspect]
     Indication: HIV INFECTION
     Dosage: 2TAB PER DAY
     Route: 048
     Dates: start: 20030601
  2. SUSTIVA [Concomitant]
     Indication: HIV INFECTION
     Route: 048
     Dates: start: 20030601, end: 20070405
  3. VIRAMUNE [Concomitant]
     Route: 065
     Dates: start: 20070401

REACTIONS (5)
  - DEEP VEIN THROMBOSIS [None]
  - HYPERHOMOCYSTEINAEMIA [None]
  - OEDEMA [None]
  - PAIN IN EXTREMITY [None]
  - POST THROMBOTIC SYNDROME [None]
